FAERS Safety Report 25637342 (Version 3)
Quarter: 2025Q4

REPORT INFORMATION
  Report Type: Spontaneous
  Country: US (occurrence: US)
  Receive Date: 20250804
  Receipt Date: 20251112
  Transmission Date: 20260117
  Serious: Yes (Hospitalization, Disabling, Other)
  Sender: SANOFI AVENTIS
  Company Number: US-SANOFI-02607911

PATIENT
  Age: 96 Year
  Sex: Male
  Weight: 89.27 kg

DRUGS (1)
  1. DUPIXENT [Suspect]
     Active Substance: DUPILUMAB
     Indication: Nasal polyps
     Dosage: 300 MG, QOW
     Route: 065
     Dates: start: 202407, end: 2025

REACTIONS (7)
  - Abdominal pain upper [Unknown]
  - Diarrhoea [Unknown]
  - Blindness [Unknown]
  - Hip fracture [Unknown]
  - Limb injury [Recovering/Resolving]
  - Fall [Unknown]
  - Sinusitis [Not Recovered/Not Resolved]

NARRATIVE: CASE EVENT DATE: 20240101
